FAERS Safety Report 5526806-3 (Version None)
Quarter: 2007Q4

REPORT INFORMATION
  Report Type: 
  Country: None (occurrence: None)
  Receive Date: 20071127
  Receipt Date: 20071119
  Transmission Date: 20080405
  Serious: Yes (Hospitalization)
  Sender: FDA-Public Use
  Company Number: GB-BRISTOL-MYERS SQUIBB COMPANY-13160783

PATIENT
  Age: 53 Year
  Sex: Female

DRUGS (3)
  1. IXABEPILONE [Suspect]
     Indication: BREAST CANCER
     Route: 042
     Dates: start: 20051003, end: 20051003
  2. CAPECITABINE [Suspect]
     Indication: BREAST CANCER
     Route: 048
     Dates: start: 20051003, end: 20051008
  3. DOMPERIDONE [Concomitant]
     Dates: start: 20051008, end: 20051001

REACTIONS (3)
  - MUCOSAL INFLAMMATION [None]
  - NEUTROPENIC SEPSIS [None]
  - OESOPHAGITIS [None]
